FAERS Safety Report 12668626 (Version 1)
Quarter: 2016Q3

REPORT INFORMATION
  Report Type: Spontaneous
  Country: US (occurrence: US)
  Receive Date: 20160819
  Receipt Date: 20160819
  Transmission Date: 20161109
  Serious: No
  Sender: FDA-Public Use
  Company Number: US-ASTRAZENECA-2016SE54499

PATIENT
  Sex: Male
  Weight: 64 kg

DRUGS (5)
  1. DOXAZOSIN [Concomitant]
     Active Substance: DOXAZOSIN\DOXAZOSIN MESYLATE
     Indication: PROSTATE CANCER
     Dosage: 4.0MG UNKNOWN
  2. CLONIDINE. [Concomitant]
     Active Substance: CLONIDINE
     Indication: BLOOD PRESSURE ABNORMAL
     Dosage: 2.0MG UNKNOWN
  3. ZOFRAN [Concomitant]
     Active Substance: ONDANSETRON HYDROCHLORIDE
  4. BYDUREON [Suspect]
     Active Substance: EXENATIDE
     Indication: DIABETES MELLITUS
     Route: 065
     Dates: start: 201603
  5. BUSPAR [Concomitant]
     Active Substance: BUSPIRONE HYDROCHLORIDE
     Indication: NERVE INJURY
     Dosage: 7.0MG UNKNOWN

REACTIONS (6)
  - Nausea [Unknown]
  - Breast pain [Unknown]
  - Vomiting [Unknown]
  - Injection site nodule [Unknown]
  - Breast swelling [Unknown]
  - Eructation [Unknown]
